FAERS Safety Report 6722240-9 (Version None)
Quarter: 2010Q2

REPORT INFORMATION
  Report Type: 
  Country: None (occurrence: None)
  Receive Date: 20100512
  Receipt Date: 20100501
  Transmission Date: 20101027
  Serious: No
  Sender: FDA-Public Use
  Company Number: US-B.I. PHARMACEUTICALS,INC./RIDGEFIELD-2010-BP-05065BP

PATIENT
  Age: 44 Year
  Sex: Female

DRUGS (5)
  1. ZANTAC 75 [Suspect]
     Indication: STRESS
     Dosage: 75 MG
     Route: 048
     Dates: start: 20100430
  2. ZANTAC 75 [Suspect]
     Indication: ANXIETY
  3. ZANTAC 75 [Suspect]
     Indication: DYSPEPSIA
  4. SYNTHROID [Concomitant]
     Indication: THYROID DISORDER
     Dosage: 0.375 MG
     Route: 048
     Dates: start: 19880101
  5. ZANTAC 150 [Concomitant]

REACTIONS (4)
  - FEELING OF RELAXATION [None]
  - NECK PAIN [None]
  - PAIN IN JAW [None]
  - SLEEP DISORDER [None]
